FAERS Safety Report 19251273 (Version 1)
Quarter: 2021Q2

REPORT INFORMATION
  Report Type: Spontaneous
  Country: BR (occurrence: BR)
  Receive Date: 20210512
  Receipt Date: 20210512
  Transmission Date: 20210717
  Serious: Yes (Other)
  Sender: FDA-Public Use
  Company Number: BR-TAKEDA-2021TUS030275

PATIENT
  Age: 37 Year
  Sex: Male

DRUGS (9)
  1. ADALIMUMAB [Concomitant]
     Active Substance: ADALIMUMAB
     Dosage: UNK UNK, Q2WEEKS
     Dates: start: 201409
  2. AZATHIOPRINE. [Concomitant]
     Active Substance: AZATHIOPRINE
     Dosage: 100 MILLIGRAM
     Dates: start: 201511
  3. ADALIMUMAB [Concomitant]
     Active Substance: ADALIMUMAB
     Dosage: UNK UNK, 2/WEEK
     Dates: start: 201705
  4. BUDESONIDE. [Concomitant]
     Active Substance: BUDESONIDE
     Dosage: 9 MILLIGRAM
     Dates: start: 201608
  5. CURCUMIN [Concomitant]
     Active Substance: CURCUMIN
     Dosage: 3 GRAM, QD
  6. MESALAZINE [Suspect]
     Active Substance: MESALAMINE
     Indication: PRODUCT USED FOR UNKNOWN INDICATION
     Dosage: UNK
     Route: 065
     Dates: start: 201511
  7. ADALIMUMAB [Concomitant]
     Active Substance: ADALIMUMAB
     Dosage: UNK UNK, 1/WEEK
     Dates: start: 201511
  8. ENTYVIO [Suspect]
     Active Substance: VEDOLIZUMAB
     Indication: COLITIS ULCERATIVE
     Dosage: UNK
     Route: 042
     Dates: start: 201703
  9. BUDESONIDE. [Concomitant]
     Active Substance: BUDESONIDE
     Dosage: 3 MILLIGRAM
     Dates: start: 201703

REACTIONS (6)
  - Rash pustular [Unknown]
  - Calculus urinary [Unknown]
  - Colitis ulcerative [Unknown]
  - Haematochezia [Unknown]
  - Mucous stools [Unknown]
  - Faeces hard [Unknown]

NARRATIVE: CASE EVENT DATE: 201512
